FAERS Safety Report 14299423 (Version 12)
Quarter: 2021Q4

REPORT INFORMATION
  Report Type: Other
  Country: CA (occurrence: CA)
  Receive Date: 20171219
  Receipt Date: 20211023
  Transmission Date: 20220303
  Serious: Yes (Hospitalization, Other)
  Sender: FDA-Public Use
  Company Number: CA-ROCHE-1659599

PATIENT
  Age: 51 Year
  Sex: Male

DRUGS (41)
  1. RITUXAN [Suspect]
     Active Substance: RITUXIMAB
     Indication: Rheumatoid arthritis
     Dosage: HE RECEIVED RITUXIMAB INFUSION ON 31/OCT/2016?PREVIOUS RITUXIMAB INFUSION: 26/FEB/2020.
     Route: 041
     Dates: start: 20151022, end: 20210407
  2. ACETAMINOPHEN [Concomitant]
     Active Substance: ACETAMINOPHEN
     Indication: Premedication
     Route: 048
     Dates: start: 20151022, end: 20161031
  3. ACETAMINOPHEN [Concomitant]
     Active Substance: ACETAMINOPHEN
     Route: 048
     Dates: start: 20161031
  4. ACETAMINOPHEN [Concomitant]
     Active Substance: ACETAMINOPHEN
     Route: 048
  5. DIPHENHYDRAMINE [Concomitant]
     Active Substance: DIPHENHYDRAMINE
     Indication: Premedication
     Route: 048
     Dates: start: 20151022
  6. METHYLPREDNISOLONE [Concomitant]
     Active Substance: METHYLPREDNISOLONE
     Indication: Premedication
     Route: 042
     Dates: start: 20151022
  7. METHOTREXATE [Concomitant]
     Active Substance: METHOTREXATE
  8. FOLIC ACID [Concomitant]
     Active Substance: FOLIC ACID
  9. PLAQUENIL [Concomitant]
     Active Substance: HYDROXYCHLOROQUINE SULFATE
  10. SULFASALAZINE [Concomitant]
     Active Substance: SULFASALAZINE
  11. BISOPROLOL [Concomitant]
     Active Substance: BISOPROLOL
  12. XARELTO [Concomitant]
     Active Substance: RIVAROXABAN
  13. ALMAGEL (CANADA) [Concomitant]
  14. AMLODIPINE [Concomitant]
     Active Substance: AMLODIPINE BESYLATE
  15. CALCIUM [Concomitant]
     Active Substance: CALCIUM
  16. PERINDOPRIL [Concomitant]
     Active Substance: PERINDOPRIL
  17. CYMBALTA [Concomitant]
     Active Substance: DULOXETINE HYDROCHLORIDE
  18. DOMPERIDONE [Concomitant]
     Active Substance: DOMPERIDONE
  19. ELIQUIS [Concomitant]
     Active Substance: APIXABAN
  20. FUROSEMIDE [Concomitant]
     Active Substance: FUROSEMIDE
  21. HYDROMORPHONE [Concomitant]
     Active Substance: HYDROMORPHONE
  22. HYDROMORPHONE [Concomitant]
     Active Substance: HYDROMORPHONE
  23. LORAZEPAM [Concomitant]
     Active Substance: LORAZEPAM
  24. PANTOPRAZOLE [Concomitant]
     Active Substance: PANTOPRAZOLE
  25. PERINDOPRIL [Concomitant]
     Active Substance: PERINDOPRIL
  26. PREDNISONE [Concomitant]
     Active Substance: PREDNISONE
  27. RELAXA (CANADA) [Concomitant]
  28. SODIUM BICARBONATE [Concomitant]
     Active Substance: SODIUM BICARBONATE
  29. SPIRONOLACTONE [Concomitant]
     Active Substance: SPIRONOLACTONE
  30. SULFASALAZINE [Concomitant]
     Active Substance: SULFASALAZINE
  31. SULFATRIM [Concomitant]
     Active Substance: SULFAMETHOXAZOLE\TRIMETHOPRIM
     Dosage: 800-150 MG MILLIGRAM
  32. TERAZOSIN [Concomitant]
     Active Substance: TERAZOSIN HYDROCHLORIDE
  33. XARELTO [Concomitant]
     Active Substance: RIVAROXABAN
  34. MYCOPHENOLATE MOFETIL [Concomitant]
     Active Substance: MYCOPHENOLATE MOFETIL
     Route: 048
  35. ALENDRONATE [Concomitant]
     Active Substance: ALENDRONATE SODIUM
  36. CALCIUM PANTOTHENATE\CYANOCOBALAMIN\NIACINAMIDE\PYRIDOXINE HYDROCHLORI [Concomitant]
     Active Substance: CALCIUM PANTOTHENATE\CYANOCOBALAMIN\NIACINAMIDE\PYRIDOXINE HYDROCHLORIDE\RIBOFLAVIN\THIAMINE MONONIT
  37. HYLO [Concomitant]
     Dosage: IN EACH EYE
  38. ACETYLCYSTEINE [Concomitant]
     Active Substance: ACETYLCYSTEINE
     Dosage: IN EACH EYE
  39. OXYCODONE [Concomitant]
     Active Substance: OXYCODONE
  40. SALAGEN [Concomitant]
     Active Substance: PILOCARPINE HYDROCHLORIDE
  41. SPIRONOLACTONE [Concomitant]
     Active Substance: SPIRONOLACTONE

REACTIONS (27)
  - Pericarditis [Unknown]
  - Pneumonia [Unknown]
  - Renal disorder [Unknown]
  - Necrotising fasciitis [Recovered/Resolved]
  - Renal impairment [Unknown]
  - Gastroenteritis [Unknown]
  - Blood uric acid increased [Not Recovered/Not Resolved]
  - Blood pressure increased [Unknown]
  - Musculoskeletal stiffness [Unknown]
  - Oropharyngeal pain [Unknown]
  - Pain in extremity [Not Recovered/Not Resolved]
  - Rheumatoid arthritis [Recovered/Resolved]
  - Splinter [Unknown]
  - Back pain [Unknown]
  - Heart rate decreased [Unknown]
  - Headache [Unknown]
  - Mouth ulceration [Recovering/Resolving]
  - Infusion related reaction [Recovered/Resolved]
  - Blood pressure systolic abnormal [Unknown]
  - Oral herpes [Not Recovered/Not Resolved]
  - Blood pressure fluctuation [Unknown]
  - Dysphonia [Recovered/Resolved]
  - Oropharyngeal pain [Recovered/Resolved]
  - Diarrhoea [Recovered/Resolved]
  - Nausea [Recovered/Resolved]
  - Blood pressure diastolic abnormal [Unknown]
  - Heart valve incompetence [Unknown]

NARRATIVE: CASE EVENT DATE: 20151109
